FAERS Safety Report 10641069 (Version 1)
Quarter: 2014Q4

REPORT INFORMATION
  Report Type: Spontaneous
  Country: DE (occurrence: DE)
  Receive Date: 20141209
  Receipt Date: 20141209
  Transmission Date: 20150529
  Serious: Yes (Other)
  Sender: FDA-Public Use
  Company Number: DE-WATSON-2014-26110

PATIENT
  Age: 1 Day
  Sex: Male
  Weight: 4 kg

DRUGS (2)
  1. TOPIRAMATE (UNKNOWN) [Suspect]
     Active Substance: TOPIRAMATE
     Indication: EPILEPSY
     Dosage: 100 MG, BID
     Route: 064
     Dates: start: 20130417, end: 20131229
  2. TEGRETOL [Suspect]
     Active Substance: CARBAMAZEPINE
     Indication: EPILEPSY
     Dosage: 400-600 MG DAILY
     Route: 064
     Dates: start: 20130417, end: 20131229

REACTIONS (11)
  - Temperature regulation disorder [Recovered/Resolved]
  - Petechiae [Recovered/Resolved]
  - Apnoea neonatal [Recovered/Resolved]
  - Respiratory disorder neonatal [Recovered/Resolved]
  - Atrial septal defect [Unknown]
  - Foetal exposure during pregnancy [Recovered/Resolved]
  - Feeding disorder neonatal [Recovered/Resolved]
  - Neonatal cholestasis [Recovered/Resolved]
  - Agitation neonatal [Recovered/Resolved]
  - Hypertonia neonatal [Recovered/Resolved]
  - Congenital choroid plexus cyst [Unknown]

NARRATIVE: CASE EVENT DATE: 20130417
